FAERS Safety Report 17808057 (Version 1)
Quarter: 2020Q2

REPORT INFORMATION
  Report Type: Spontaneous
  Country: GB (occurrence: GB)
  Receive Date: 20200520
  Receipt Date: 20200520
  Transmission Date: 20200714
  Serious: Yes (Other)
  Sender: FDA-Public Use
  Company Number: GB-PFIZER INC-2020198646

PATIENT
  Age: 43 Year
  Sex: Female
  Weight: 54 kg

DRUGS (13)
  1. TAZOCIN [Suspect]
     Active Substance: PIPERACILLIN SODIUM\TAZOBACTAM SODIUM
     Dosage: 2G/0.25G
     Dates: start: 20200427
  2. CHLORHEXIDINE GLUCONATE. [Concomitant]
     Active Substance: CHLORHEXIDINE GLUCONATE
     Dosage: USE AS DIRECTED
     Dates: start: 20200325, end: 20200408
  3. CIPROFLOXACIN. [Concomitant]
     Active Substance: CIPROFLOXACIN
     Dosage: 2 DF, 1X/DAY
     Dates: start: 20200218, end: 20200223
  4. OXYBUTYNIN. [Concomitant]
     Active Substance: OXYBUTYNIN CHLORIDE
     Dosage: 4 DF, 1X/DAY(2 IN THE MORNING AND 2 AT NIGHT)
     Dates: start: 20191126
  5. DOCUSATE SODIUM. [Concomitant]
     Active Substance: DOCUSATE SODIUM
     Dosage: 2 DF, 1X/DAY
     Dates: start: 20200107
  6. OMEPRAZOLE. [Concomitant]
     Active Substance: OMEPRAZOLE
     Dosage: 1 DF, 1X/DAY
     Dates: start: 20200107
  7. TRAMADOL. [Concomitant]
     Active Substance: TRAMADOL
     Dosage: TAKE 1 OR 2 UP TO TWICE A DAY
     Dates: start: 20200107
  8. CELECOXIB. [Concomitant]
     Active Substance: CELECOXIB
     Dosage: 2 DF, 1X/DAY
     Dates: start: 20191126
  9. ADCAL [Concomitant]
     Dosage: 2 DF, 1X/DAY(CHEW OR SUCK ONE TABLET TWICE DAILY)
     Dates: start: 20200107
  10. ZOPICLONE [Concomitant]
     Active Substance: ZOPICLONE
     Dosage: TAKE ONE - TWO AT NIGHT
     Dates: start: 20200424
  11. PREGABALIN. [Concomitant]
     Active Substance: PREGABALIN
     Dosage: 2 DF, 1X/DAY
     Dates: start: 20200107
  12. SERTRALINE [Concomitant]
     Active Substance: SERTRALINE HYDROCHLORIDE
     Dosage: TAKE HALF TABLET DAILY FOR 2 WEEKS THEN OD
     Dates: start: 20200213, end: 20200312
  13. DOMPERIDONE [Concomitant]
     Active Substance: DOMPERIDONE
     Dosage: 3 DF, 1X/DAY
     Dates: start: 20200207, end: 20200217

REACTIONS (3)
  - Rash [Recovered/Resolved]
  - Throat tightness [Unknown]
  - Mouth ulceration [Unknown]

NARRATIVE: CASE EVENT DATE: 20200427
